FAERS Safety Report 20444277 (Version 1)
Quarter: 2022Q1

REPORT INFORMATION
  Report Type: Spontaneous
  Country: US (occurrence: US)
  Receive Date: 20220208
  Receipt Date: 20220208
  Transmission Date: 20220423
  Serious: No
  Sender: FDA-Public Use
  Company Number: US-PFIZER INC-2021635647

PATIENT
  Age: 45 Year
  Sex: Female

DRUGS (11)
  1. XELJANZ XR [Suspect]
     Active Substance: TOFACITINIB CITRATE
     Indication: Psoriatic arthropathy
     Dosage: 11 MG, 1X/DAY
     Route: 048
  2. XELJANZ XR [Suspect]
     Active Substance: TOFACITINIB CITRATE
     Dosage: 11 MG, DAILY
     Route: 048
  3. MINOXIDIL [Concomitant]
     Active Substance: MINOXIDIL
  4. TRAMADOL HCL [Concomitant]
     Active Substance: TRAMADOL HYDROCHLORIDE
  5. BROMPHENEX HD [Concomitant]
  6. VITAMIN D NOS [Concomitant]
     Active Substance: VITAMIN D NOS
  7. CEFDINIR [Concomitant]
     Active Substance: CEFDINIR
  8. ASPIRIN [Concomitant]
     Active Substance: ASPIRIN
  9. FOLIC ACID [Concomitant]
     Active Substance: FOLIC ACID
  10. DEXAMETHASONE [Concomitant]
     Active Substance: DEXAMETHASONE
  11. METAXALONE [Concomitant]
     Active Substance: METAXALONE

REACTIONS (1)
  - Sinusitis [Unknown]
